FAERS Safety Report 9089925 (Version 1)
Quarter: 2013Q1

REPORT INFORMATION
  Report Type: Report from Study
  Country: US (occurrence: US)
  Receive Date: 20130201
  Receipt Date: 20130201
  Transmission Date: 20140127
  Serious: No
  Sender: FDA-Public Use
  Company Number: US-ABBOTT-13P-163-1030001-00

PATIENT
  Age: 68 Year
  Sex: Female

DRUGS (9)
  1. HUMIRA [Suspect]
     Indication: RHEUMATOID ARTHRITIS
     Route: 058
     Dates: start: 20121116
  2. CYMBALTA [Concomitant]
     Indication: FIBROMYALGIA
  3. VITAMIN D3 [Concomitant]
     Indication: SUPPLEMENTATION THERAPY
  4. BIOTIN [Concomitant]
     Indication: ALOPECIA
  5. HYAL [Concomitant]
     Indication: SUPPLEMENTATION THERAPY
  6. VITAMIN B6 [Concomitant]
     Indication: SUPPLEMENTATION THERAPY
  7. VITAMIN B12 [Concomitant]
     Indication: SUPPLEMENTATION THERAPY
  8. PRILOSEC [Concomitant]
     Indication: OESOPHAGEAL ULCER
  9. VOLTARIN GEL [Concomitant]
     Indication: ARTHRITIS

REACTIONS (4)
  - Mobility decreased [Unknown]
  - Injection site pain [Not Recovered/Not Resolved]
  - Musculoskeletal stiffness [Unknown]
  - Incorrect dose administered [Unknown]
